FAERS Safety Report 8225044-3 (Version None)
Quarter: 2012Q1

REPORT INFORMATION
  Report Type: 
  Country: None (occurrence: None)
  Receive Date: 20120321
  Receipt Date: 20120307
  Transmission Date: 20120608
  Serious: Yes (Other)
  Sender: FDA-Public Use
  Company Number: JP-ROCHE-1036940

PATIENT
  Sex: Male
  Weight: 37 kg

DRUGS (2)
  1. TAMIFLU [Suspect]
     Dates: start: 20120126, end: 20120126
  2. TAMIFLU [Suspect]
     Indication: INFLUENZA
     Dosage: DOSAGE IS UNCERTAIN.
     Route: 048
     Dates: start: 20120125, end: 20120125

REACTIONS (1)
  - ABNORMAL BEHAVIOUR [None]
